FAERS Safety Report 6186886-1 (Version None)
Quarter: 2009Q2

REPORT INFORMATION
  Report Type: 
  Country: None (occurrence: None)
  Receive Date: 20090512
  Receipt Date: 20090417
  Transmission Date: 20091009
  Serious: No
  Sender: FDA-Public Use
  Company Number: US-BAYER-200913574NA

PATIENT
  Age: 30 Year
  Sex: Female
  Weight: 120 kg

DRUGS (1)
  1. MIRENA [Suspect]
     Indication: CONTRACEPTION
     Route: 015
     Dates: start: 20080407, end: 20081218

REACTIONS (1)
  - PREGNANCY WITH CONTRACEPTIVE DEVICE [None]
